FAERS Safety Report 10199164 (Version 1)
Quarter: 2014Q2

REPORT INFORMATION
  Report Type: Report from Study
  Country: ES (occurrence: ES)
  Receive Date: 20140527
  Receipt Date: 20140527
  Transmission Date: 20141212
  Serious: Yes (Hospitalization)
  Sender: FDA-Public Use
  Company Number: ES-SA-2014SA063323

PATIENT
  Age: 81 Year
  Sex: Male

DRUGS (13)
  1. OXALIPLATIN [Suspect]
     Indication: COLORECTAL CANCER METASTATIC
     Route: 042
     Dates: start: 20120521, end: 20120827
  2. FLUOROURACIL [Suspect]
     Indication: COLORECTAL CANCER METASTATIC
     Route: 042
     Dates: start: 20120521, end: 20140109
  3. FLUOROURACIL [Suspect]
     Indication: COLORECTAL CANCER METASTATIC
     Route: 042
     Dates: start: 20120521, end: 20140109
  4. LEUCOVORIN CALCIUM [Suspect]
     Indication: COLORECTAL CANCER METASTATIC
     Dosage: 1 IN 14 D
     Route: 042
     Dates: start: 20120521, end: 20140109
  5. BEVACIZUMAB [Suspect]
     Indication: COLORECTAL CANCER METASTATIC
     Route: 042
     Dates: start: 20120521, end: 20140109
  6. PLACEBO [Suspect]
     Indication: COLORECTAL CANCER METASTATIC
     Route: 042
     Dates: start: 20120521, end: 20131125
  7. ASPIRIN [Concomitant]
     Indication: CEREBROVASCULAR ACCIDENT
     Dosage: 100 MG
     Route: 048
  8. ATORVASTATIN [Concomitant]
     Indication: HYPERCHOLESTEROLAEMIA
     Dosage: 40 MG
     Route: 048
  9. ONDANSETRON [Concomitant]
     Indication: PROPHYLACTIC CHEMOTHERAPY
     Dosage: 8 MG
     Route: 042
     Dates: start: 20120521
  10. DEXAMETHASONE [Concomitant]
     Indication: PROPHYLACTIC CHEMOTHERAPY
     Dosage: 20 MG
     Route: 042
     Dates: start: 20120521
  11. CALCIUM GLUCONATE [Concomitant]
     Indication: PROPHYLACTIC CHEMOTHERAPY
     Dosage: DAILY DOSE: 2 AMPULE
     Route: 042
     Dates: start: 20120521
  12. MAGNESIUM SULFATE [Concomitant]
     Indication: PROPHYLACTIC CHEMOTHERAPY
     Dosage: DAILY DOSE: 2 AMPULE
     Route: 042
     Dates: start: 20120521
  13. INSULIN [Concomitant]
     Indication: TYPE 2 DIABETES MELLITUS
     Route: 058
     Dates: start: 20120617

REACTIONS (1)
  - Transient ischaemic attack [Recovered/Resolved]
